FAERS Safety Report 11010071 (Version 1)
Quarter: 2015Q2

REPORT INFORMATION
  Report Type: Spontaneous
  Country: GB (occurrence: GB)
  Receive Date: 20150410
  Receipt Date: 20150410
  Transmission Date: 20150821
  Serious: Yes (Other)
  Sender: FDA-Public Use
  Company Number: GB-PFIZER INC-2015119205

PATIENT
  Age: 8 Year
  Sex: Male
  Weight: 17 kg

DRUGS (7)
  1. AMOXICILLIN. [Concomitant]
     Active Substance: AMOXICILLIN
     Dosage: 10ML ORAL THREE TIMES A DAY FOR 7 DAYS
     Route: 048
     Dates: start: 20150325
  2. PARACETAMOL [Concomitant]
     Active Substance: ACETAMINOPHEN
     Dosage: 1X5ML SPOON 4 TIMES/DAY
     Route: 048
     Dates: start: 20150323
  3. SALBUTAMOL [Concomitant]
     Active Substance: ALBUTEROL
     Dosage: INHALE 2 DOSES AS NEEDED
     Route: 055
     Dates: start: 20141107
  4. IBUPROFEN. [Suspect]
     Active Substance: IBUPROFEN
     Dosage: UNK
     Dates: start: 20150325, end: 20150327
  5. FLUTICASONE [Concomitant]
     Active Substance: FLUTICASONE\FLUTICASONE PROPIONATE
     Dosage: INHALE 2 DOSES TWICE DAILY
     Route: 055
     Dates: start: 20141107
  6. PROMETHAZINE HYDROCHLORIDE. [Concomitant]
     Active Substance: PROMETHAZINE HYDROCHLORIDE
     Dosage: 5MLS OD PRN
     Dates: start: 20150323
  7. PHENOXYMETHYLPENICILLIN [Concomitant]
     Active Substance: PENICILLIN V
     Dosage: 1X5ML SPOON 4 TIMES/DAY
     Route: 048
     Dates: start: 20150323

REACTIONS (1)
  - Asthma [Recovered/Resolved]

NARRATIVE: CASE EVENT DATE: 20150325
